FAERS Safety Report 11709080 (Version 1)
Quarter: 2015Q4

REPORT INFORMATION
  Report Type: Spontaneous
  Country: US (occurrence: US)
  Receive Date: 20151104
  Receipt Date: 20151104
  Transmission Date: 20160304
  Serious: No
  Sender: FDA-Public Use
  Company Number: US-ELI_LILLY_AND_COMPANY-US201109000217

PATIENT
  Sex: Female

DRUGS (1)
  1. FORTEO [Suspect]
     Active Substance: TERIPARATIDE

REACTIONS (5)
  - Bone density abnormal [Unknown]
  - Spinal osteoarthritis [Unknown]
  - Arthralgia [Unknown]
  - Neck pain [Unknown]
  - Bone pain [Unknown]
